FAERS Safety Report 16985053 (Version 1)
Quarter: 2019Q4

REPORT INFORMATION
  Report Type: Spontaneous
  Country: GB (occurrence: GB)
  Receive Date: 20191101
  Receipt Date: 20191101
  Transmission Date: 20200122
  Serious: Yes (Hospitalization)
  Sender: FDA-Public Use
  Company Number: GB-PFIZER INC-2019466670

PATIENT
  Age: 81 Year
  Sex: Female

DRUGS (12)
  1. VITAMIN B COMPOUND STRONG [Concomitant]
     Active Substance: NIACINAMIDE\PYRIDOXINE HYDROCHLORIDE\RIBOFLAVIN\THIAMINE HYDROCHLORIDE
     Dosage: 1 DF, 1X/DAY IN THE MORNING
  2. SERTRALINE HCL [Suspect]
     Active Substance: SERTRALINE HYDROCHLORIDE
     Dosage: 100 MG, 1X/DAY, IN THE MORNING
  3. NOVORAPID [Concomitant]
     Active Substance: INSULIN ASPART
     Dosage: 42 IU, DAILY (16 UNITS 9 AM, 14 UNITS 12 NOON, 12 UNITS 5 PM) (100 UNITS/ML)
  4. HUMULIN L [Concomitant]
     Active Substance: INSULIN HUMAN
     Dosage: 14 IU, UNK, 12 NOON (100 UNITS/ML)
  5. LIDOCAINE. [Concomitant]
     Active Substance: LIDOCAINE
     Dosage: 1 DF, 1X/DAY, AT NIGHT
  6. WARFARIN [Concomitant]
     Active Substance: WARFARIN
     Dosage: 5 MG ON MONDAY AND 4 MG THE REST OF THE WEEK
  7. PYRIDOXINE [Concomitant]
     Active Substance: PYRIDOXINE
     Dosage: 150 MG, DAILY
  8. ATORVASTATIN [Concomitant]
     Active Substance: ATORVASTATIN
     Dosage: 20 MG, 1X/DAY, AT NIGHT
  9. FOLIC ACID. [Concomitant]
     Active Substance: FOLIC ACID
     Dosage: 5 MG, 1X/DAY IN THE MORNING
  10. BISOPROLOL FUMARATE. [Suspect]
     Active Substance: BISOPROLOL FUMARATE
     Dosage: 3.75 MG, 1X/DAY, IN THE MORNING
  11. CASSIA SENNA [Concomitant]
     Active Substance: HERBALS\SENNOSIDES
     Dosage: 15 MG, DAILY AT NIGHT
  12. LANSOPRAZOLE. [Concomitant]
     Active Substance: LANSOPRAZOLE
     Dosage: 15 MG, 1X/DAY IN THE MORNING

REACTIONS (5)
  - Pneumonia aspiration [Unknown]
  - Electrocardiogram QT prolonged [Recovered/Resolved]
  - Blood glucose decreased [Unknown]
  - Somnolence [Unknown]
  - Productive cough [Unknown]
